FAERS Safety Report 22527935 (Version 1)
Quarter: 2023Q2

REPORT INFORMATION
  Report Type: Report from Study
  Country: CA (occurrence: CA)
  Receive Date: 20230606
  Receipt Date: 20230606
  Transmission Date: 20230722
  Serious: Yes (Death, Hospitalization)
  Sender: FDA-Public Use
  Company Number: CA-BEH-2023159530

PATIENT
  Age: 67 Year
  Sex: Male
  Weight: 91 kg

DRUGS (24)
  1. HIZENTRA [Suspect]
     Active Substance: HUMAN IMMUNOGLOBULIN G
     Indication: Secondary immunodeficiency
     Dosage: 10 GRAM, QW
     Route: 065
     Dates: start: 20201215
  2. CELEBREX [Concomitant]
     Active Substance: CELECOXIB
  3. TYLENOL [Concomitant]
     Active Substance: ACETAMINOPHEN
  4. HYDROMORPHONE [Concomitant]
     Active Substance: HYDROMORPHONE
  5. MOMETASONE [Concomitant]
     Active Substance: MOMETASONE
  6. LORAZEPAM [Concomitant]
     Active Substance: LORAZEPAM
  7. SYMBICORT [Concomitant]
     Active Substance: BUDESONIDE\FORMOTEROL FUMARATE DIHYDRATE
  8. DOCUSATE [Concomitant]
     Active Substance: DOCUSATE
  9. DEXILANT [Concomitant]
     Active Substance: DEXLANSOPRAZOLE
  10. ALBUTEROL [Concomitant]
     Active Substance: ALBUTEROL
  11. XARELTO [Concomitant]
     Active Substance: RIVAROXABAN
  12. DULOXETINE [Concomitant]
     Active Substance: DULOXETINE
  13. PREGABALIN [Concomitant]
     Active Substance: PREGABALIN
  14. MONTELUKAST [Concomitant]
     Active Substance: MONTELUKAST SODIUM
  15. TOPIRAMATE [Concomitant]
     Active Substance: TOPIRAMATE
  16. VALACYCLOVIR [Concomitant]
     Active Substance: VALACYCLOVIR HYDROCHLORIDE
  17. MIRTAZAPINE [Concomitant]
     Active Substance: MIRTAZAPINE
  18. SULFATRIM [Concomitant]
     Active Substance: SULFAMETHOXAZOLE\TRIMETHOPRIM
  19. MYCOPHENOLIC ACID [Concomitant]
     Active Substance: MYCOPHENOLIC ACID
  20. CALCIUM\VITAMIN D [Concomitant]
     Active Substance: CALCIUM\VITAMIN D
  21. CORTEF [Concomitant]
     Active Substance: HYDROCORTISONE
  22. RANITIDINE [Concomitant]
     Active Substance: RANITIDINE
  23. AMOXICILLIN [Concomitant]
     Active Substance: AMOXICILLIN
  24. BACLOFEN [Concomitant]
     Active Substance: BACLOFEN

REACTIONS (1)
  - General physical health deterioration [Fatal]

NARRATIVE: CASE EVENT DATE: 20230523
